FAERS Safety Report 22255547 (Version 1)
Quarter: 2023Q2

REPORT INFORMATION
  Report Type: Spontaneous
  Country: FR (occurrence: FR)
  Receive Date: 20230426
  Receipt Date: 20230426
  Transmission Date: 20230721
  Serious: Yes (Other)
  Sender: FDA-Public Use
  Company Number: None

PATIENT
  Age: 51 Year
  Sex: Male
  Weight: 60 kg

DRUGS (3)
  1. GEMZAR [Suspect]
     Active Substance: GEMCITABINE HYDROCHLORIDE
     Indication: Lymphoma
     Dosage: UNK UNK, UNKNOWN
     Route: 042
     Dates: start: 20230405, end: 20230405
  2. METHOTREXATE [Suspect]
     Active Substance: METHOTREXATE
     Indication: Lymphoma
     Dosage: 3 G//M2, UNKNOWN
     Route: 042
     Dates: start: 20230405, end: 20230405
  3. ONCASPAR [Suspect]
     Active Substance: PEGASPARGASE
     Indication: Lymphoma
     Dosage: UNK, UNKNOWN
     Route: 042
     Dates: start: 20230406, end: 20230407

REACTIONS (3)
  - Cell death [Recovering/Resolving]
  - Cholestasis [Recovered/Resolved]
  - Off label use [Unknown]

NARRATIVE: CASE EVENT DATE: 20230405
